FAERS Safety Report 5163535-2 (Version None)
Quarter: 2006Q4

REPORT INFORMATION
  Report Type: 
  Country: None (occurrence: None)
  Receive Date: 20061204
  Receipt Date: 20020121
  Transmission Date: 20070319
  Serious: Yes (Hospitalization)
  Sender: FDA-Public Use
  Company Number: US-BRISTOL-MYERS SQUIBB COMPANY-11677929

PATIENT
  Age: 28 Month
  Sex: Female

DRUGS (8)
  1. ZERIT [Suspect]
     Dosage: FROM THE 26TH WEEK OF GESTATION.
     Route: 064
  2. VIDEX [Suspect]
     Dosage: FROM THE 26TH WEEK OF GESTATION.
     Route: 064
  3. RETROVIR [Suspect]
     Dosage: FROM THE 13TH WEEK TO THE 26TH WEEK OF GESTATION.
     Route: 064
  4. INVIRASE [Suspect]
     Dosage: FROM THE 17TH WEEK TO THE END OF PREGNANCY.
     Route: 064
  5. NORVIR [Suspect]
     Dosage: FROM THE 17TH WEEK TO THE END OF PREGNANCY.
     Route: 064
  6. EPIVIR [Suspect]
     Dosage: FROM THE 17TH WEEK OF GESTATION TO THE 26TH WEEK.
     Route: 064
  7. EPIVIR [Suspect]
     Dosage: SYRUP
     Route: 048
  8. RETROVIR [Suspect]
     Dosage: SYRUP
     Route: 048

REACTIONS (3)
  - ELECTROENCEPHALOGRAM ABNORMAL [None]
  - NUCLEAR MAGNETIC RESONANCE IMAGING ABNORMAL [None]
  - PREGNANCY [None]
